FAERS Safety Report 5999602-0 (Version None)
Quarter: 2008Q4

REPORT INFORMATION
  Report Type: 
  Country: None (occurrence: None)
  Receive Date: 20081211
  Receipt Date: 20081211
  Transmission Date: 20090506
  Serious: Yes (Life-Threatening, Hospitalization)
  Sender: FDA-Public Use
  Company Number: None

PATIENT
  Sex: Female
  Weight: 72.5755 kg

DRUGS (1)
  1. PROPAFENONE HCL [Suspect]
     Indication: ARRHYTHMIA SUPRAVENTRICULAR
     Dosage: 2 DAILY 12 HRS. APART
     Dates: start: 20080701, end: 20081001

REACTIONS (1)
  - MYOCARDIAL INFARCTION [None]
